FAERS Safety Report 13951572 (Version 2)
Quarter: 2018Q1

REPORT INFORMATION
  Report Type: Spontaneous
  Country: US (occurrence: US)
  Receive Date: 20170908
  Receipt Date: 20180302
  Transmission Date: 20180508
  Serious: No
  Sender: FDA-Public Use
  Company Number: US-AMNEAL PHARMACEUTICALS-2017AMN00666

PATIENT
  Sex: Female

DRUGS (1)
  1. ESTRADIOL. [Suspect]
     Active Substance: ESTRADIOL
     Indication: PRODUCT USED FOR UNKNOWN INDICATION
     Dosage: UNK
     Route: 067
     Dates: start: 201701, end: 201704

REACTIONS (6)
  - Vulvovaginal burning sensation [Unknown]
  - Product packaging issue [Unknown]
  - Vaginal discharge [Unknown]
  - Drug ineffective [Unknown]
  - Vulvovaginal dryness [Unknown]
  - Dyspareunia [Unknown]
